FAERS Safety Report 10185809 (Version 3)
Quarter: 2014Q2

REPORT INFORMATION
  Report Type: Spontaneous
  Country: GB (occurrence: GB)
  Receive Date: 20140521
  Receipt Date: 20140620
  Transmission Date: 20141212
  Serious: Yes (Hospitalization)
  Sender: FDA-Public Use
  Company Number: GB-VERTEX PHARMACEUTICALS INC-2014-002402

PATIENT
  Age: 46 Year
  Sex: Male

DRUGS (4)
  1. INCIVO [Suspect]
     Indication: ANTIVIRAL TREATMENT
     Dosage: TOTAL DAILY DOSE 2250 MG.
     Route: 048
     Dates: start: 20130114, end: 20130225
  2. PEGASYS [Suspect]
     Indication: ANTIVIRAL TREATMENT
     Dosage: DOSAGE FORM: INJECTION
     Route: 058
     Dates: start: 20130114, end: 20130226
  3. COPEGUS [Suspect]
     Indication: ANTIVIRAL TREATMENT
     Dosage: DOSAGE FORM: TABLETS, 200 MG, 3 TABLETS 2 TIMES A DAY
     Route: 048
     Dates: start: 20130114, end: 20130226
  4. OMEPRAZOLE [Concomitant]
     Indication: GASTROINTESTINAL DISORDER
     Dosage: 40 MG, QD
     Route: 048
     Dates: start: 20130211

REACTIONS (1)
  - Pancreatitis acute [Recovered/Resolved]
